FAERS Safety Report 23673237 (Version 1)
Quarter: 2024Q1

REPORT INFORMATION
  Report Type: Spontaneous
  Country: FR (occurrence: FR)
  Receive Date: 20240326
  Receipt Date: 20240326
  Transmission Date: 20240410
  Serious: Yes (Other)
  Sender: FDA-Public Use
  Company Number: None

PATIENT
  Age: 39 Year
  Sex: Female

DRUGS (4)
  1. LOPRAZOLAM [Suspect]
     Active Substance: LOPRAZOLAM
  2. ZOPICLONE [Suspect]
     Active Substance: ZOPICLONE
  3. ZOLPIDEM TARTRATE [Suspect]
     Active Substance: ZOLPIDEM TARTRATE
  4. LORMETAZEPAM [Suspect]
     Active Substance: LORMETAZEPAM

REACTIONS (1)
  - Drug use disorder [Unknown]
